FAERS Safety Report 10114501 (Version 1)
Quarter: 2014Q2

REPORT INFORMATION
  Report Type: Report from Study
  Country: CN (occurrence: CN)
  Receive Date: 20140426
  Receipt Date: 20140426
  Transmission Date: 20141212
  Serious: Yes (Other)
  Sender: FDA-Public Use
  Company Number: CN-ROCHE-1384219

PATIENT
  Sex: 0

DRUGS (8)
  1. BEVACIZUMAB [Suspect]
     Indication: OVARIAN EPITHELIAL CANCER
     Dosage: DAY 1
     Route: 065
  2. BEVACIZUMAB [Suspect]
     Indication: MALIGNANT PERITONEAL NEOPLASM
  3. NEDAPLATIN [Suspect]
     Indication: OVARIAN EPITHELIAL CANCER
     Dosage: DAY 1
     Route: 065
  4. NEDAPLATIN [Suspect]
     Indication: MALIGNANT PERITONEAL NEOPLASM
  5. ALBUMIN-BOUND PACLITAXEL [Suspect]
     Indication: OVARIAN EPITHELIAL CANCER
     Route: 065
  6. ALBUMIN-BOUND PACLITAXEL [Suspect]
     Indication: MALIGNANT PERITONEAL NEOPLASM
  7. CARBOPLATIN [Suspect]
     Indication: OVARIAN EPITHELIAL CANCER
     Route: 065
  8. CARBOPLATIN [Suspect]
     Indication: MALIGNANT PERITONEAL NEOPLASM

REACTIONS (2)
  - Bone marrow failure [Unknown]
  - Hepatic function abnormal [Unknown]
